FAERS Safety Report 5869823-6 (Version None)
Quarter: 2008Q3

REPORT INFORMATION
  Report Type: 
  Country: None (occurrence: None)
  Receive Date: 20080904
  Receipt Date: 20080827
  Transmission Date: 20090109
  Serious: Yes (Other)
  Sender: FDA-Public Use
  Company Number: GB-AMGEN-UK301884

PATIENT
  Age: 58 Year
  Sex: Female
  Weight: 70 kg

DRUGS (7)
  1. NEULASTA [Suspect]
     Indication: CHEMOTHERAPY
     Dates: start: 20080718
  2. PACLITAXEL [Concomitant]
  3. ADRIAMYCIN PFS [Concomitant]
     Route: 042
  4. CYCLOPHOSPHAMIDE [Concomitant]
     Route: 042
  5. APREPITANT [Concomitant]
     Route: 048
  6. DEXAMETHASONE TAB [Concomitant]
     Route: 048
  7. DOMPERIDONE [Concomitant]
     Route: 048

REACTIONS (2)
  - NEUTROPENIA [None]
  - THERAPEUTIC RESPONSE DECREASED [None]
